FAERS Safety Report 14845839 (Version 1)
Quarter: 2018Q2

REPORT INFORMATION
  Report Type: Spontaneous
  Country: US (occurrence: US)
  Receive Date: 20180504
  Receipt Date: 20180504
  Transmission Date: 20180711
  Serious: Yes (Other)
  Sender: FDA-Public Use
  Company Number: US-ALKEM LABORATORIES LIMITED-US-ALKEM-2018-02793

PATIENT
  Age: 34 Year
  Sex: Female

DRUGS (5)
  1. TACROLIMUS. [Suspect]
     Active Substance: TACROLIMUS
     Indication: IMMUNOSUPPRESSANT DRUG THERAPY
     Dosage: UNK (AT TARGET LEVELS 8 TO 12)
     Route: 065
  2. DEXTRAN [Concomitant]
     Active Substance: DEXTRAN
     Indication: ANTICOAGULANT THERAPY
     Dosage: UNK
     Route: 042
  3. HEPARIN [Concomitant]
     Active Substance: HEPARIN SODIUM
     Indication: ANTICOAGULANT THERAPY
     Dosage: UNK (LOW MOLECULAR WEIGHT)
     Route: 065
  4. MYCOPHENOLATE MOFETIL. [Suspect]
     Active Substance: MYCOPHENOLATE MOFETIL
     Dosage: 540 MG, BID
     Route: 065
  5. MYCOPHENOLATE MOFETIL. [Suspect]
     Active Substance: MYCOPHENOLATE MOFETIL
     Indication: IMMUNOSUPPRESSANT DRUG THERAPY
     Dosage: UNK (HIGHER DOSES)
     Route: 065

REACTIONS (5)
  - Pneumonia aspiration [Unknown]
  - Drug ineffective [Unknown]
  - Transplant rejection [Unknown]
  - Graft thrombosis [Unknown]
  - Drug intolerance [Unknown]
